FAERS Safety Report 6163429-X (Version None)
Quarter: 2009Q2

REPORT INFORMATION
  Report Type: 
  Country: None (occurrence: None)
  Receive Date: 20090420
  Receipt Date: 20090420
  Transmission Date: 20091009
  Serious: No
  Sender: FDA-Public Use
  Company Number: None

PATIENT
  Sex: Male
  Weight: 96 kg

DRUGS (4)
  1. FLUOROURACIL [Suspect]
     Dosage: 5184 MG
     Dates: end: 20090401
  2. BEVACIZUMAB (RHUMAB VEGF) [Suspect]
     Dosage: 949 MG
     Dates: end: 20090413
  3. LEUCOVORIN CALCIUM [Suspect]
     Dosage: 864 MG
     Dates: end: 20090330
  4. ELOXATIN [Suspect]
     Dosage: 184 MG
     Dates: end: 20090330

REACTIONS (1)
  - NEUTROPHIL COUNT DECREASED [None]
